FAERS Safety Report 7160202-0 (Version None)
Quarter: 2010Q4

REPORT INFORMATION
  Report Type: 
  Country: None (occurrence: None)
  Receive Date: 20101214
  Receipt Date: 20091130
  Transmission Date: 20110411
  Serious: No
  Sender: FDA-Public Use
  Company Number: US-AMGEN-KDL377482

PATIENT

DRUGS (2)
  1. ENBREL [Suspect]
     Indication: PSORIASIS
     Dosage: UNK UNK, UNK
  2. ADALIMUMAB [Suspect]

REACTIONS (4)
  - DRUG DOSE OMISSION [None]
  - HERPES ZOSTER [None]
  - MALAISE [None]
  - PSORIASIS [None]
